FAERS Safety Report 6830024-6 (Version None)
Quarter: 2010Q3

REPORT INFORMATION
  Report Type: 
  Country: None (occurrence: None)
  Receive Date: 20100711
  Receipt Date: 20100422
  Transmission Date: 20110219
  Serious: No
  Sender: FDA-Public Use
  Company Number: US-ALLERGAN-1005370US

PATIENT
  Age: 72 Year
  Sex: Female

DRUGS (3)
  1. LATISSE [Suspect]
     Indication: GROWTH OF EYELASHES
     Dosage: 1 GTT, QHS
     Dates: start: 20100311
  2. LYRICA [Concomitant]
     Indication: PAIN
     Dosage: UNK
  3. MORPHINE [Concomitant]
     Indication: PAIN

REACTIONS (3)
  - INCORRECT DOSE ADMINISTERED [None]
  - SKIN HYPERPIGMENTATION [None]
  - WRONG TECHNIQUE IN DRUG USAGE PROCESS [None]
